FAERS Safety Report 9691899 (Version 1)
Quarter: 2013Q4

REPORT INFORMATION
  Report Type: Spontaneous
  Country: GB (occurrence: GB)
  Receive Date: 20131117
  Receipt Date: 20131117
  Transmission Date: 20140711
  Serious: Yes (Hospitalization)
  Sender: FDA-Public Use
  Company Number: GB-MERCK-1311GBR004861

PATIENT
  Age: 71 Year
  Sex: Female

DRUGS (8)
  1. ENALAPRIL MALEATE [Suspect]
     Route: 048
  2. OMEPRAZOLE [Suspect]
     Dosage: 20 MG, QD
     Route: 048
  3. BENDROFLUMETHIAZIDE [Suspect]
  4. CITALOPRAM [Suspect]
     Indication: DEPRESSION
     Dosage: 20 MG, QD
     Route: 048
     Dates: start: 20131004, end: 20131030
  5. DOMPERIDONE [Concomitant]
     Indication: ABDOMINAL DISTENSION
     Dosage: 10 MG, TID
     Route: 048
  6. LANSOPRAZOLE [Concomitant]
  7. LEVOTHYROXINE SODIUM [Concomitant]
     Dosage: 100 MICROGRAM, QD
     Route: 048
  8. ORAMORPH [Concomitant]
     Dosage: 5 MG, PRN
     Route: 048

REACTIONS (4)
  - Hyponatraemia [Recovering/Resolving]
  - Hallucination [Unknown]
  - Diarrhoea [Unknown]
  - Hypokalaemia [Unknown]
